FAERS Safety Report 5622448-X (Version None)
Quarter: 2008Q1

REPORT INFORMATION
  Report Type: 
  Country: None (occurrence: None)
  Receive Date: 20080211
  Receipt Date: 20080207
  Transmission Date: 20080703
  Serious: Yes (Life-Threatening, Hospitalization)
  Sender: FDA-Public Use
  Company Number: DE-PFIZER INC-2008004609

PATIENT
  Sex: Male
  Weight: 103 kg

DRUGS (2)
  1. CELEBREX [Suspect]
     Indication: PROCEDURAL PAIN
     Dosage: DAILY DOSE:200MG
     Route: 048
  2. ANAESTHETICS [Concomitant]

REACTIONS (1)
  - TONGUE OEDEMA [None]
